FAERS Safety Report 7467642-0 (Version None)
Quarter: 2011Q2

REPORT INFORMATION
  Report Type: 
  Country: None (occurrence: None)
  Receive Date: 20110509
  Receipt Date: 20110504
  Transmission Date: 20111010
  Serious: Yes (Other)
  Sender: FDA-Public Use
  Company Number: BR-PFIZER INC-2011076359

PATIENT
  Age: 52 Year
  Sex: Female
  Weight: 63 kg

DRUGS (4)
  1. NOCTIDEN [Concomitant]
     Indication: ANXIETY
     Dosage: UNK
  2. VARENICLINE TARTRATE [Suspect]
     Indication: SMOKING CESSATION THERAPY
     Dosage: 0.5 MG, 1X/DAY
     Route: 048
     Dates: start: 20110318, end: 20110101
  3. LIORAM [Concomitant]
     Indication: DEPRESSION
     Dosage: UNK
  4. OLCADIL [Concomitant]
     Indication: ANXIETY
     Dosage: UNK

REACTIONS (1)
  - BLOOD PRESSURE INCREASED [None]
